FAERS Safety Report 15556547 (Version 5)
Quarter: 2018Q4

REPORT INFORMATION
  Report Type: Report from Study
  Country: DE (occurrence: DE)
  Receive Date: 20181026
  Receipt Date: 20181116
  Transmission Date: 20190205
  Serious: Yes (Life-Threatening)
  Sender: FDA-Public Use
  Company Number: DE-PFIZER INC-2018437222

PATIENT
  Age: 38 Year
  Sex: Female
  Weight: 57 kg

DRUGS (5)
  1. TRETINOIN. [Concomitant]
     Active Substance: TRETINOIN
     Dosage: 70 MG, DAILY (D6-8)
     Dates: start: 20170624, end: 20170626
  2. IDARUBICIN [Suspect]
     Active Substance: IDARUBICIN
     Dosage: 18.72 MG, DAILY
     Dates: start: 20170619
  3. ETOPOSIDE. [Suspect]
     Active Substance: ETOPOSIDE
     Dosage: 156 MG, DAILY
     Dates: start: 20170619
  4. TRETINOIN. [Concomitant]
     Active Substance: TRETINOIN
     Dosage: 20 MG, DAILY (D9-21)
     Dates: start: 20170627
  5. CYTARABINE. [Suspect]
     Active Substance: CYTARABINE
     Dosage: 156 MG, DAILY
     Dates: start: 20170619

REACTIONS (3)
  - Shock haemorrhagic [Recovered/Resolved]
  - Gastrointestinal haemorrhage [Recovered/Resolved]
  - Thrombocytopenia [Recovered/Resolved]

NARRATIVE: CASE EVENT DATE: 20170702
